FAERS Safety Report 13849740 (Version 1)
Quarter: 2017Q3

REPORT INFORMATION
  Report Type: Spontaneous
  Country: ES (occurrence: ES)
  Receive Date: 20170809
  Receipt Date: 20170809
  Transmission Date: 20171127
  Serious: Yes (Other)
  Sender: FDA-Public Use
  Company Number: ES-009507513-1708ESP001955

PATIENT
  Age: 15 Year
  Sex: Male
  Weight: 71 kg

DRUGS (2)
  1. AERIUS [Suspect]
     Active Substance: DESLORATADINE
     Indication: RHINITIS ALLERGIC
     Dosage: 5MG ONCE A DAY
     Route: 048
     Dates: start: 2017
  2. AVAMYS [Concomitant]
     Active Substance: FLUTICASONE FUROATE
     Indication: RHINITIS ALLERGIC
     Dosage: 27,5MICROGRAMOS 8 TIMES A DAY
     Route: 045
     Dates: start: 2016

REACTIONS (1)
  - Abdominal pain upper [Recovered/Resolved]

NARRATIVE: CASE EVENT DATE: 2017
